FAERS Safety Report 9716971 (Version 1)
Quarter: 2013Q4

REPORT INFORMATION
  Report Type: Spontaneous
  Country: US (occurrence: US)
  Receive Date: 20131127
  Receipt Date: 20131127
  Transmission Date: 20140711
  Serious: No
  Sender: FDA-Public Use
  Company Number: US-GILEAD-2009-0020172

PATIENT
  Sex: Female
  Weight: 90.72 kg

DRUGS (11)
  1. LETAIRIS [Suspect]
     Indication: PULMONARY ARTERIAL HYPERTENSION
     Route: 048
     Dates: start: 20081202
  2. SINGULAIR [Concomitant]
  3. ALBUTEROL [Concomitant]
  4. SYMBICORT [Concomitant]
  5. TOPROL XL [Concomitant]
  6. MICARDIS [Concomitant]
  7. CATAPRES-TTS 2 [Concomitant]
  8. ACIPHEX [Concomitant]
  9. TYLENOL W/COD #4 [Concomitant]
  10. PHENERGAN [Concomitant]
  11. LOMOTIL [Concomitant]

REACTIONS (4)
  - Sinus congestion [Unknown]
  - Dyspnoea [Unknown]
  - Local swelling [Unknown]
  - Joint swelling [Unknown]
